FAERS Safety Report 9856428 (Version 2)
Quarter: 2014Q1

REPORT INFORMATION
  Report Type: Spontaneous
  Country: DE (occurrence: DE)
  Receive Date: 20140130
  Receipt Date: 20140206
  Transmission Date: 20141002
  Serious: Yes (Hospitalization, Other)
  Sender: FDA-Public Use
  Company Number: DE-UCBSA-110512

PATIENT
  Sex: Male

DRUGS (5)
  1. NEUPRO [Suspect]
     Dosage: UNKNOWN DOSE
  2. LITHIUM [Concomitant]
     Dosage: 3-0-2
  3. LITHIUM [Concomitant]
     Dosage: 1-0-1
  4. VOCADO HCT [Concomitant]
     Indication: BLOOD PRESSURE
  5. TORASEMIDAL [Concomitant]
     Indication: BLOOD PRESSURE

REACTIONS (13)
  - Intervertebral disc protrusion [Unknown]
  - Sleep disorder [Unknown]
  - Bipolar I disorder [Unknown]
  - Bipolar disorder [Unknown]
  - Oedema peripheral [Unknown]
  - Inflammation [Unknown]
  - Epidermolysis bullosa [Unknown]
  - Loss of consciousness [Unknown]
  - Fall [Unknown]
  - Toxicity to various agents [Unknown]
  - Renal failure [Unknown]
  - Sudden onset of sleep [Unknown]
  - Pain [Unknown]
